FAERS Safety Report 21138433 (Version 1)
Quarter: 2022Q3

REPORT INFORMATION
  Report Type: Spontaneous
  Country: FR (occurrence: FR)
  Receive Date: 20220727
  Receipt Date: 20220727
  Transmission Date: 20221027
  Serious: Yes (Hospitalization)
  Sender: FDA-Public Use
  Company Number: None

PATIENT
  Age: 66 Year
  Sex: Male
  Weight: 80.6 kg

DRUGS (4)
  1. KEYTRUDA [Suspect]
     Active Substance: PEMBROLIZUMAB
     Indication: Malignant melanoma stage IV
     Dosage: 200 MILLIGRAM, Q3W
     Route: 042
     Dates: start: 20220324, end: 20220603
  2. MEKINIST [Suspect]
     Active Substance: TRAMETINIB DIMETHYL SULFOXIDE
     Indication: Malignant melanoma stage IV
     Dosage: 1.5 MILLIGRAM, QD
     Route: 048
     Dates: start: 20220315, end: 20220505
  3. MEKINIST [Suspect]
     Active Substance: TRAMETINIB DIMETHYL SULFOXIDE
     Dosage: 1 MILLIGRAM, QD
     Route: 048
     Dates: start: 20220506, end: 20220516
  4. MEKINIST [Suspect]
     Active Substance: TRAMETINIB DIMETHYL SULFOXIDE
     Dosage: 1 MILLIGRAM, QD
     Route: 048
     Dates: start: 20220602

REACTIONS (4)
  - Arthritis [Recovering/Resolving]
  - Oedema peripheral [Recovering/Resolving]
  - Hyperthermia [Recovered/Resolved]
  - General physical health deterioration [Recovering/Resolving]

NARRATIVE: CASE EVENT DATE: 20220425
